FAERS Safety Report 21369676 (Version 1)
Quarter: 2022Q3

REPORT INFORMATION
  Report Type: Spontaneous
  Country: GY (occurrence: None)
  Receive Date: 20220922
  Receipt Date: 20220922
  Transmission Date: 20221027
  Serious: Yes (Hospitalization, Disabling)
  Sender: FDA-Public Use
  Company Number: None

PATIENT
  Age: 18 Year
  Sex: Female

DRUGS (1)
  1. DICLOFENAC SODIUM [Suspect]
     Active Substance: DICLOFENAC SODIUM
     Indication: Menstrual disorder
     Dosage: OTHER QUANTITY : 1 INJECTION(S);?
     Route: 042
     Dates: start: 20220803

REACTIONS (6)
  - Abnormal behaviour [None]
  - Burns second degree [None]
  - Depression [None]
  - Eating disorder [None]
  - Amnesia [None]
  - Insomnia [None]

NARRATIVE: CASE EVENT DATE: 20220807
